FAERS Safety Report 11003249 (Version 2)
Quarter: 2016Q1

REPORT INFORMATION
  Report Type: Report from Study
  Country: JP (occurrence: JP)
  Receive Date: 20150409
  Receipt Date: 20160218
  Transmission Date: 20160525
  Serious: Yes (Death, Other)
  Sender: FDA-Public Use
  Company Number: JP-ROCHE-1561535

PATIENT

DRUGS (1)
  1. RITUXIMAB [Suspect]
     Active Substance: RITUXIMAB
     Indication: LIVER TRANSPLANT
     Route: 042

REACTIONS (7)
  - Anaemia [Unknown]
  - Hypotension [Unknown]
  - Intra-abdominal haemorrhage [Unknown]
  - Hepatitis C [Fatal]
  - Hepatic failure [Fatal]
  - Abdominal infection [Unknown]
  - Renal impairment [Unknown]
